FAERS Safety Report 16112491 (Version 9)
Quarter: 2020Q3

REPORT INFORMATION
  Report Type: Spontaneous
  Country: US (occurrence: US)
  Receive Date: 20190325
  Receipt Date: 20200923
  Transmission Date: 20201102
  Serious: Yes (Disabling)
  Sender: FDA-Public Use
  Company Number: US-PFIZER INC-2016294083

PATIENT
  Age: 67 Year
  Sex: Female
  Weight: 73 kg

DRUGS (14)
  1. FLONASE [Concomitant]
     Active Substance: FLUTICASONE PROPIONATE
     Indication: HYPERSENSITIVITY
     Dosage: UNK, AS NEEDED (2 SPRAYS IN EACH NOSTRIL)
     Dates: start: 20181211
  2. AMLODIPINE [Concomitant]
     Active Substance: AMLODIPINE BESYLATE
     Indication: HYPERTENSION
     Dosage: 10 MG, DAILY
     Route: 048
     Dates: start: 20181011
  3. LOPRESSOR [Concomitant]
     Active Substance: METOPROLOL TARTRATE
     Indication: HYPERTENSION
     Dosage: 25 MG, 2X/DAY
     Route: 048
     Dates: start: 20180607
  4. CALCIUM WITH VITAMIN D [CALCIUM CARBONATE;COLECALCIFEROL] [Concomitant]
     Dosage: UNK
  5. FLECTOR [Suspect]
     Active Substance: DICLOFENAC EPOLAMINE
     Indication: OSTEOARTHRITIS
     Dosage: 2 DF (TWO PATCHES ONTO THE SKIN NIGHTLY/APPLIES 2 PATCHES AT NIGHT)
     Route: 062
     Dates: start: 2000
  6. LISINOPRIL. [Concomitant]
     Active Substance: LISINOPRIL
     Dosage: UNK
  7. NORVASC [Concomitant]
     Active Substance: AMLODIPINE BESYLATE
     Dosage: UNK
  8. ACIPHEX [Concomitant]
     Active Substance: RABEPRAZOLE SODIUM
     Dosage: UNK
  9. TYLENOL WITH CODEINE [Concomitant]
     Active Substance: ACETAMINOPHEN\CODEINE PHOSPHATE
     Indication: PAIN
     Dosage: 1 DF, UNK(1 TABLET EVERY 4 HOURS)
     Dates: start: 2000
  10. FLECTOR [Suspect]
     Active Substance: DICLOFENAC EPOLAMINE
     Indication: ARTHRITIS
     Dosage: 3 DF, 1X/DAY (3 PATCHES PER NIGHT)/ 3 A DAY
     Dates: start: 2017
  11. FLECTOR [Suspect]
     Active Substance: DICLOFENAC EPOLAMINE
     Indication: PAIN
  12. TENORMIN [Concomitant]
     Active Substance: ATENOLOL
     Dosage: UNK
  13. RESTASIS [Concomitant]
     Active Substance: CYCLOSPORINE
     Indication: DRY EYE
     Dosage: 2 GTT, 2X/DAY (0.05 EYE DROPS ONE DROP IN EACH EYE TWICE DAILY)
     Dates: start: 20170814
  14. FLECTOR [Suspect]
     Active Substance: DICLOFENAC EPOLAMINE
     Indication: FIBROMYALGIA
     Dosage: 1 DF (ONE PATCH)

REACTIONS (3)
  - Drug ineffective for unapproved indication [Recovering/Resolving]
  - Overdose [Unknown]
  - Off label use [Unknown]
